FAERS Safety Report 9887753 (Version 4)
Quarter: 2014Q2

REPORT INFORMATION
  Report Type: Spontaneous
  Country: US (occurrence: US)
  Receive Date: 20140211
  Receipt Date: 20140429
  Transmission Date: 20141212
  Serious: Yes (Hospitalization)
  Sender: FDA-Public Use
  Company Number: US-JNJFOC-20140202854

PATIENT
  Age: 59 Year
  Sex: Male
  Weight: 114.76 kg

DRUGS (12)
  1. XARELTO [Suspect]
     Indication: CEREBROVASCULAR ACCIDENT PROPHYLAXIS
     Route: 048
     Dates: start: 20130307, end: 20140202
  2. XARELTO [Suspect]
     Indication: ATRIAL FIBRILLATION
     Route: 048
     Dates: start: 20130307, end: 20140202
  3. CARTIA [Concomitant]
     Indication: HEART RATE
     Route: 065
     Dates: start: 20130115
  4. TOPROL-XL [Concomitant]
     Indication: BLOOD PRESSURE
     Route: 065
     Dates: start: 20130115
  5. COZAAR [Concomitant]
     Indication: CARDIAC DISORDER
     Route: 065
     Dates: start: 20130115
  6. COZAAR [Concomitant]
     Indication: HYPERTENSION
     Route: 065
     Dates: start: 20130307
  7. CARDIZEM CD [Concomitant]
     Indication: HYPERTENSION
     Dosage: 240
     Route: 065
     Dates: start: 20130307
  8. CARDIZEM CD [Concomitant]
     Indication: ATRIAL FIBRILLATION
     Dosage: 240
     Route: 065
     Dates: start: 20130307
  9. TOPROL [Concomitant]
     Indication: HYPERTENSION
     Route: 065
     Dates: start: 20130819
  10. TOPROL [Concomitant]
     Indication: ATRIAL FIBRILLATION
     Route: 065
     Dates: start: 20130819
  11. ECOTRIN [Concomitant]
     Route: 065
     Dates: start: 20130307
  12. ALBUTEROL [Concomitant]
     Dosage: 1-2 PUFFS EVERY 4 HOURS AS NEEDED
     Route: 055

REACTIONS (1)
  - Appendicitis [Recovered/Resolved]
